FAERS Safety Report 6440083-0 (Version None)
Quarter: 2009Q4

REPORT INFORMATION
  Report Type: 
  Country: None (occurrence: None)
  Receive Date: 20091113
  Receipt Date: 20081006
  Transmission Date: 20100525
  Serious: Yes (Life-Threatening, Hospitalization)
  Sender: FDA-Public Use
  Company Number: A0747743A

PATIENT
  Age: 47 Year
  Sex: Male

DRUGS (3)
  1. COREG [Suspect]
     Indication: DRUG USE FOR UNKNOWN INDICATION
     Dosage: 6.25MG TWICE PER DAY
     Route: 048
     Dates: start: 20070901
  2. FLOMAX [Concomitant]
  3. INSULIN [Concomitant]

REACTIONS (1)
  - CHEST PAIN [None]
